FAERS Safety Report 6994652-X (Version None)
Quarter: 2010Q3

REPORT INFORMATION
  Report Type: 
  Country: None (occurrence: None)
  Receive Date: 20100914
  Receipt Date: 20100914
  Transmission Date: 20110219
  Serious: Yes (Hospitalization)
  Sender: FDA-Public Use
  Company Number: None

PATIENT
  Age: 62 Year
  Sex: Male
  Weight: 161 kg

DRUGS (3)
  1. LISINOPRIL [Suspect]
     Indication: DIABETES MELLITUS
     Dosage: 10 MG EVERYDAY PO
     Route: 048
     Dates: start: 20040623, end: 20100831
  2. LISINOPRIL [Suspect]
     Indication: HYPERTENSION
     Dosage: 10 MG EVERYDAY PO
     Route: 048
     Dates: start: 20040623, end: 20100831
  3. DICLOFENAC SODIUM [Suspect]
     Indication: ARTHRALGIA
     Dosage: 75 MG BID PO
     Route: 048
     Dates: start: 20041018, end: 20100831

REACTIONS (2)
  - CHRONIC OBSTRUCTIVE PULMONARY DISEASE [None]
  - HYPERKALAEMIA [None]
